FAERS Safety Report 16465513 (Version 1)
Quarter: 2019Q2

REPORT INFORMATION
  Report Type: Spontaneous
  Country: US (occurrence: US)
  Receive Date: 20190621
  Receipt Date: 20190621
  Transmission Date: 20190711
  Serious: No
  Sender: FDA-Public Use
  Company Number: US-EGALET US INC-US-2018EGA000452

PATIENT
  Age: 58 Year
  Sex: Male

DRUGS (2)
  1. SPRIX [Suspect]
     Active Substance: KETOROLAC TROMETHAMINE
     Indication: HIGH FREQUENCY ABLATION
     Dosage: UNK
     Route: 045
     Dates: start: 201806
  2. SPRIX [Suspect]
     Active Substance: KETOROLAC TROMETHAMINE
     Indication: PAIN

REACTIONS (6)
  - Crying [Unknown]
  - Urine output decreased [Unknown]
  - Headache [Unknown]
  - Swelling face [Unknown]
  - Thirst [Unknown]
  - Body temperature increased [Unknown]

NARRATIVE: CASE EVENT DATE: 201806
